FAERS Safety Report 17081673 (Version 1)
Quarter: 2019Q4

REPORT INFORMATION
  Report Type: Spontaneous
  Country: US (occurrence: US)
  Receive Date: 20191030
  Receipt Date: 20191030
  Transmission Date: 20200122
  Serious: No
  Sender: FDA-Public Use
  Company Number: None

PATIENT
  Sex: Male

DRUGS (2)
  1. SAVELLA [Suspect]
     Active Substance: MILNACIPRAN HYDROCHLORIDE
  2. COSENTYX [Concomitant]
     Active Substance: SECUKINUMAB

REACTIONS (4)
  - Urinary retention [None]
  - Drug hypersensitivity [None]
  - Vomiting [None]
  - Headache [None]
